FAERS Safety Report 16660276 (Version 1)
Quarter: 2019Q3

REPORT INFORMATION
  Report Type: Spontaneous
  Country: US (occurrence: US)
  Receive Date: 20190802
  Receipt Date: 20190802
  Transmission Date: 20191004
  Serious: Yes (Other)
  Sender: FDA-Public Use
  Company Number: US-009507513-1907USA014803

PATIENT
  Sex: Female
  Weight: 124.74 kg

DRUGS (1)
  1. HYZAAR [Suspect]
     Active Substance: HYDROCHLOROTHIAZIDE\LOSARTAN POTASSIUM
     Indication: BLOOD PRESSURE ABNORMAL
     Dosage: ONE TABLET ONCE DAILY
     Route: 048

REACTIONS (2)
  - Hypokalaemia [Unknown]
  - Drug ineffective [Unknown]
